FAERS Safety Report 23507128 (Version 2)
Quarter: 2024Q1

REPORT INFORMATION
  Report Type: Report from Study
  Country: DO (occurrence: DO)
  Receive Date: 20240209
  Receipt Date: 20240305
  Transmission Date: 20240410
  Serious: Yes (Hospitalization)
  Sender: FDA-Public Use
  Company Number: DO-JNJFOC-20240202603

PATIENT
  Age: 59 Year
  Sex: Female
  Weight: 116 kg

DRUGS (1)
  1. SIMPONI [Suspect]
     Active Substance: GOLIMUMAB
     Indication: Rheumatoid arthritis
     Route: 058

REACTIONS (8)
  - Pneumonia [Recovering/Resolving]
  - Hospitalisation [Recovering/Resolving]
  - Urinary tract infection [Recovering/Resolving]
  - Hyperglycaemia [Unknown]
  - Influenza [Recovering/Resolving]
  - Pain [Recovering/Resolving]
  - Back pain [Recovering/Resolving]
  - Spinal disorder [Recovering/Resolving]

NARRATIVE: CASE EVENT DATE: 20240122
